FAERS Safety Report 15074992 (Version 2)
Quarter: 2023Q4

REPORT INFORMATION
  Report Type: Spontaneous
  Country: US (occurrence: US)
  Receive Date: 20180627
  Receipt Date: 20231128
  Transmission Date: 20240110
  Serious: Yes (Hospitalization, Other)
  Sender: FDA-Public Use
  Company Number: US-SAOL THERAPEUTICS-2017SAO01663

PATIENT
  Sex: Female

DRUGS (8)
  1. LIORESAL [Suspect]
     Active Substance: BACLOFEN
     Indication: Muscle spasticity
     Dosage: UNK
  2. LIORESAL [Suspect]
     Active Substance: BACLOFEN
     Dosage: 735 ?G, \DAY
     Route: 037
     Dates: end: 20171106
  3. LIORESAL [Suspect]
     Active Substance: BACLOFEN
     Dosage: 635 ?G, \DAY
     Dates: start: 20171106, end: 20171107
  4. LIORESAL [Suspect]
     Active Substance: BACLOFEN
     Dosage: 535 ?G, \DAY
     Dates: start: 20171107, end: 201711
  5. LIORESAL [Suspect]
     Active Substance: BACLOFEN
     Dosage: 485 ?G, \DAY
     Dates: start: 201711
  6. LIORESAL [Suspect]
     Active Substance: BACLOFEN
     Dosage: 750 ?G, \DAY
     Dates: start: 201711
  7. LIORESAL [Suspect]
     Active Substance: BACLOFEN
     Dosage: 725 ?G, \DAY
  8. LIORESAL [Suspect]
     Active Substance: BACLOFEN
     Dosage: 100 ?G, \DAY
     Dates: start: 201711

REACTIONS (7)
  - Implant site infection [Unknown]
  - Staphylococcal infection [Unknown]
  - Nausea [Unknown]
  - Vomiting [Unknown]
  - Pruritus [Recovering/Resolving]
  - Drug withdrawal syndrome [Not Recovered/Not Resolved]
  - Tremor [Not Recovered/Not Resolved]

NARRATIVE: CASE EVENT DATE: 20170101
